FAERS Safety Report 12729799 (Version 2)
Quarter: 2016Q3

REPORT INFORMATION
  Report Type: Report from Study
  Country: AU (occurrence: AU)
  Receive Date: 20160909
  Receipt Date: 20160916
  Transmission Date: 20161109
  Serious: Yes (Hospitalization, Disabling, Other)
  Sender: FDA-Public Use
  Company Number: AU-ABBVIE-16K-008-1701989-00

PATIENT
  Age: 34 Year
  Sex: Male
  Weight: 97 kg

DRUGS (2)
  1. HUMIRA [Suspect]
     Active Substance: ADALIMUMAB
     Indication: CROHN^S DISEASE
     Route: 058
     Dates: start: 20160322
  2. AZATHIOPRINE. [Concomitant]
     Active Substance: AZATHIOPRINE
     Indication: CROHN^S DISEASE
     Route: 048
     Dates: start: 201501

REACTIONS (8)
  - Secretion discharge [Unknown]
  - C-reactive protein increased [Unknown]
  - Rectal haemorrhage [Unknown]
  - Frequent bowel movements [Unknown]
  - Drug level below therapeutic [Not Recovered/Not Resolved]
  - Iron deficiency anaemia [Unknown]
  - Crohn^s disease [Not Recovered/Not Resolved]
  - Aphthous ulcer [Unknown]

NARRATIVE: CASE EVENT DATE: 2016
